FAERS Safety Report 8572556-9 (Version None)
Quarter: 2012Q3

REPORT INFORMATION
  Report Type: 
  Country: None (occurrence: None)
  Receive Date: 20120806
  Receipt Date: 20120607
  Transmission Date: 20120928
  Serious: No
  Sender: FDA-Public Use
  Company Number: US-009507513-2012SP029411

PATIENT

DRUGS (2)
  1. OXYMETAZOLINE HCL [Suspect]
     Indication: NASAL CONGESTION
  2. OXYMETAZOLINE HCL [Suspect]
     Indication: DYSPNOEA
     Dosage: 1 DF, ONCE
     Route: 045
     Dates: start: 20120501

REACTIONS (4)
  - PAIN [None]
  - EXPIRED DRUG ADMINISTERED [None]
  - NASAL DISCOMFORT [None]
  - BURNING SENSATION [None]
